FAERS Safety Report 18632876 (Version 1)
Quarter: 2020Q4

REPORT INFORMATION
  Report Type: Spontaneous
  Country: GB (occurrence: GB)
  Receive Date: 20201218
  Receipt Date: 20201218
  Transmission Date: 20210114
  Serious: Yes (Hospitalization)
  Sender: FDA-Public Use
  Company Number: GB-ACCORD-211274

PATIENT
  Age: 39 Year
  Sex: Female
  Weight: 65 kg

DRUGS (12)
  1. METFORMIN [Concomitant]
     Active Substance: METFORMIN HYDROCHLORIDE
  2. ENOXAPARIN [Concomitant]
     Active Substance: ENOXAPARIN
  3. ADCAL-D3 [Concomitant]
     Active Substance: CALCIUM CARBONATE\CHOLECALCIFEROL
  4. FOLIC ACID. [Concomitant]
     Active Substance: FOLIC ACID
  5. CLOZAPINE. [Suspect]
     Active Substance: CLOZAPINE
     Indication: SCHIZOPHRENIA
     Dates: start: 20150802, end: 20201123
  6. CLARITHROMYCIN. [Concomitant]
     Active Substance: CLARITHROMYCIN
  7. RAMIPRIL. [Concomitant]
     Active Substance: RAMIPRIL
  8. AMOXICILLIN SODIUM/CLAVULANATE POTASSIUM [Concomitant]
     Active Substance: AMOXICILLIN\CLAVULANATE POTASSIUM
  9. BISOPROLOL [Concomitant]
     Active Substance: BISOPROLOL
  10. CARIPRAZINE [Concomitant]
     Active Substance: CARIPRAZINE
  11. AMLODIPINE [Concomitant]
     Active Substance: AMLODIPINE BESYLATE
  12. DAPAGLIFLOZIN. [Concomitant]
     Active Substance: DAPAGLIFLOZIN

REACTIONS (1)
  - Lymphopenia [Not Recovered/Not Resolved]

NARRATIVE: CASE EVENT DATE: 20201123
